FAERS Safety Report 4627600-8 (Version None)
Quarter: 2005Q2

REPORT INFORMATION
  Report Type: 
  Country: None (occurrence: None)
  Receive Date: 20050405
  Receipt Date: 20050323
  Transmission Date: 20051028
  Serious: Yes (Other)
  Sender: FDA-Public Use
  Company Number: 2005049009

PATIENT
  Age: 84 Year
  Sex: Female
  Weight: 53.0709 kg

DRUGS (7)
  1. BEXTRA [Suspect]
     Indication: SPINAL COLUMN STENOSIS
     Dosage: 1 IN 1 D, ORAL
     Route: 048
     Dates: start: 20030101
  2. METOPROLOL TARTRATE [Concomitant]
  3. DESLORATADINE (DESLORATADINE) [Concomitant]
  4. ASPIRIN [Concomitant]
  5. SIMVASTATIN [Concomitant]
  6. RALOXIFENE HCL [Concomitant]
  7. ATORVASTATIN CALCIUM [Concomitant]

REACTIONS (2)
  - CEREBROVASCULAR ACCIDENT [None]
  - MYOCARDIAL INFARCTION [None]
